FAERS Safety Report 9761989 (Version 1)
Quarter: 2013Q4

REPORT INFORMATION
  Report Type: Spontaneous
  Country: US (occurrence: US)
  Receive Date: 20131216
  Receipt Date: 20131216
  Transmission Date: 20140711
  Serious: No
  Sender: FDA-Public Use
  Company Number: US-BIOGENIDEC-2013BI109839

PATIENT
  Sex: Female
  Weight: 82 kg

DRUGS (4)
  1. TECFIDERA [Suspect]
     Indication: PRODUCT USED FOR UNKNOWN INDICATION
     Route: 048
  2. ACIDOPHILUS [Concomitant]
  3. PREVACID [Concomitant]
  4. CYMBALTA [Concomitant]

REACTIONS (1)
  - Musculoskeletal stiffness [Unknown]
